FAERS Safety Report 25809429 (Version 3)
Quarter: 2025Q4

REPORT INFORMATION
  Report Type: Spontaneous
  Country: US (occurrence: US)
  Receive Date: 20250916
  Receipt Date: 20251112
  Transmission Date: 20260118
  Serious: No
  Sender: SANOFI AVENTIS
  Company Number: US-SA-2025SA274373

PATIENT
  Age: 25 Year
  Sex: Male

DRUGS (3)
  1. ALTUVIIIO [Suspect]
     Active Substance: EFANESOCTOCOG ALFA
     Indication: Factor VIII deficiency
     Dosage: 3800 UNITS (3420-4180) WEEKLY FOR MAJOR BLEED
     Route: 042
     Dates: start: 202504
  2. ALTUVIIIO [Suspect]
     Active Substance: EFANESOCTOCOG ALFA
     Dosage: 3800 UNITS (3420-4180) ONCE AS NEEDED FOR MAJOR BLEEDS
     Route: 042
     Dates: start: 202504
  3. ALTUVIIIO [Suspect]
     Active Substance: EFANESOCTOCOG ALFA
     Dosage: 2200 UNITS (1980-2420) ONCE AS NEEDED FOR MINOR BLEEDS
     Route: 042
     Dates: start: 202504

REACTIONS (2)
  - Haemorrhage [Unknown]
  - Spontaneous haemorrhage [Recovered/Resolved]

NARRATIVE: CASE EVENT DATE: 20250902
